FAERS Safety Report 14748257 (Version 1)
Quarter: 2018Q2

REPORT INFORMATION
  Report Type: Spontaneous
  Country: US (occurrence: US)
  Receive Date: 20180411
  Receipt Date: 20180411
  Transmission Date: 20180711
  Serious: Yes (Hospitalization)
  Sender: FDA-Public Use
  Company Number: US-DEPOMED, INC.-US-2018DEP000761

PATIENT

DRUGS (1)
  1. GRALISE [Suspect]
     Active Substance: GABAPENTIN
     Indication: POST LAMINECTOMY SYNDROME
     Dosage: 1200 MG, QD
     Route: 048
     Dates: start: 20170915

REACTIONS (3)
  - Tracheal disorder [Not Recovered/Not Resolved]
  - Product use in unapproved indication [Unknown]
  - Drug titration error [Unknown]

NARRATIVE: CASE EVENT DATE: 20170915
